FAERS Safety Report 10583701 (Version 3)
Quarter: 2014Q4

REPORT INFORMATION
  Report Type: Report from Study
  Country: ES (occurrence: ES)
  Receive Date: 20141114
  Receipt Date: 20141229
  Transmission Date: 20150529
  Serious: Yes (Hospitalization)
  Sender: FDA-Public Use
  Company Number: ES-JNJFOC-20141103003

PATIENT
  Age: 49 Year
  Sex: Female
  Weight: 94 kg

DRUGS (6)
  1. OMEPRAZOLE. [Concomitant]
     Active Substance: OMEPRAZOLE
     Indication: HIATUS HERNIA
     Dosage: (1,0,0)
     Route: 048
  2. STELARA [Suspect]
     Active Substance: USTEKINUMAB
     Indication: PRODUCT USED FOR UNKNOWN INDICATION
     Route: 058
     Dates: start: 20130425, end: 20141104
  3. EUTIROX [Concomitant]
     Active Substance: LEVOTHYROXINE SODIUM
     Indication: HYPOTHYROIDISM
     Dosage: 150 (1,0,0)
     Route: 048
  4. TORUSITORIN [Concomitant]
     Route: 048
  5. DERACOXIB [Concomitant]
     Route: 048
  6. NOCTURNO [Concomitant]
     Route: 048

REACTIONS (3)
  - Cauda equina syndrome [Recovered/Resolved]
  - Synovial cyst [Recovered/Resolved]
  - Cellulitis [Recovering/Resolving]

NARRATIVE: CASE EVENT DATE: 20140805
